FAERS Safety Report 21102704 (Version 1)
Quarter: 2022Q3

REPORT INFORMATION
  Report Type: Spontaneous
  Country: US (occurrence: US)
  Receive Date: 20220720
  Receipt Date: 20220720
  Transmission Date: 20221027
  Serious: Yes (Hospitalization, Other)
  Sender: FDA-Public Use
  Company Number: US-BRISTOL-MYERS SQUIBB COMPANY-2022-071450

PATIENT
  Age: 80 Year
  Sex: Male
  Weight: 74.8 kg

DRUGS (1)
  1. REVLIMID [Suspect]
     Active Substance: LENALIDOMIDE
     Indication: Plasma cell myeloma
     Dosage: 3WEEKS AND 1 WEEK OFF
     Route: 048

REACTIONS (2)
  - Pneumonia [Unknown]
  - COVID-19 [Unknown]
